FAERS Safety Report 14545767 (Version 1)
Quarter: 2018Q1

REPORT INFORMATION
  Report Type: Report from Study
  Country: None (occurrence: FI)
  Receive Date: 20180219
  Receipt Date: 20180219
  Transmission Date: 20180509
  Serious: Yes (Hospitalization)
  Sender: FDA-Public Use
  Company Number: FI-ABBVIE-18K-055-2258756-00

PATIENT
  Age: 82 Year
  Sex: Male

DRUGS (3)
  1. SINEMET DEPOT [Concomitant]
     Active Substance: CARBIDOPA\LEVODOPA
     Indication: PRODUCT USED FOR UNKNOWN INDICATION
     Dosage: FORM STRENGTH: 50/200 MG. ??1 TABLET IN THE EVENINGS.
  2. RIVATRIL [Concomitant]
     Active Substance: CLONAZEPAM
     Indication: PRODUCT USED FOR UNKNOWN INDICATION
     Dosage: IN THE EVENINGS
  3. DUODOPA [Suspect]
     Active Substance: CARBIDOPA\LEVODOPA
     Indication: PARKINSON^S DISEASE
     Dosage: MD 11 ML; CD 3.6 ML/H; ED 0.8 ML. 16H TREATMENT.
     Route: 050
     Dates: start: 2015

REACTIONS (3)
  - General physical health deterioration [Not Recovered/Not Resolved]
  - Influenza [Recovered/Resolved]
  - Inflammatory marker increased [Not Recovered/Not Resolved]

NARRATIVE: CASE EVENT DATE: 20180130
